FAERS Safety Report 25718940 (Version 1)
Quarter: 2025Q3

REPORT INFORMATION
  Report Type: Spontaneous
  Country: CN (occurrence: CN)
  Receive Date: 20250823
  Receipt Date: 20250823
  Transmission Date: 20251020
  Serious: Yes (Life-Threatening, Hospitalization, Other)
  Sender: AMGEN
  Company Number: CN-AMGEN-CHNSP2025167382

PATIENT
  Age: 41 Year
  Sex: Female

DRUGS (3)
  1. INEBILIZUMAB [Suspect]
     Active Substance: INEBILIZUMAB
     Indication: Neuromyelitis optica spectrum disorder
     Route: 065
     Dates: start: 20240606
  2. INEBILIZUMAB [Suspect]
     Active Substance: INEBILIZUMAB
     Route: 065
     Dates: start: 20240621
  3. METHYLPREDNISOLONE [Concomitant]
     Active Substance: METHYLPREDNISOLONE
     Indication: Neuromyelitis optica spectrum disorder
     Route: 065
     Dates: start: 2024

REACTIONS (3)
  - Pneumocystis jirovecii pneumonia [Recovering/Resolving]
  - Acute respiratory failure [Recovering/Resolving]
  - Cytomegalovirus test positive [Unknown]

NARRATIVE: CASE EVENT DATE: 20240101
